FAERS Safety Report 8522406 (Version 6)
Quarter: 2014Q1

REPORT INFORMATION
  Report Type: Spontaneous
  Country: US (occurrence: US)
  Receive Date: 20120419
  Receipt Date: 20140305
  Transmission Date: 20141002
  Serious: Yes (Other)
  Sender: FDA-Public Use
  Company Number: US-PFIZER INC-2012096763

PATIENT
  Age: 73 Year
  Sex: Female
  Weight: 68 kg

DRUGS (3)
  1. CELEBREX [Suspect]
     Indication: ARTHRITIS
     Dosage: 200 MG, 2X/DAY
     Route: 048
  2. CELEBREX [Suspect]
     Indication: MYALGIA
     Dosage: 100 MG, UNK
  3. CELEBREX [Suspect]
     Indication: SYSTEMIC LUPUS ERYTHEMATOSUS

REACTIONS (10)
  - Sjogren^s syndrome [Unknown]
  - Systemic lupus erythematosus [Unknown]
  - Fibromyalgia [Unknown]
  - Blood pressure increased [Unknown]
  - Blood cholesterol increased [Unknown]
  - Cystitis [Unknown]
  - Palpitations [Unknown]
  - Pain [Unknown]
  - Influenza like illness [Unknown]
  - Gait disturbance [Unknown]
